FAERS Safety Report 26095211 (Version 1)
Quarter: 2025Q4

REPORT INFORMATION
  Report Type: Spontaneous
  Country: US (occurrence: US)
  Receive Date: 20251127
  Receipt Date: 20251127
  Transmission Date: 20260117
  Serious: Yes (Hospitalization, Other)
  Sender: Kenvue
  Company Number: None

PATIENT
  Age: 18 Year
  Sex: Male

DRUGS (1)
  1. ACETAMINOPHEN [Suspect]
     Active Substance: ACETAMINOPHEN
     Indication: Product used for unknown indication
     Dosage: ACUTE INGESTION OF APAP 125 GRAMS

REACTIONS (4)
  - Shock [Recovered/Resolved]
  - Mental status changes [Recovered/Resolved]
  - Acidosis [Recovered/Resolved]
  - Overdose [Unknown]
